FAERS Safety Report 9215959 (Version 1)
Quarter: 2013Q2

REPORT INFORMATION
  Report Type: Spontaneous
  Country: PE (occurrence: None)
  Receive Date: 20130404
  Receipt Date: 20130404
  Transmission Date: 20140414
  Serious: Yes (Other)
  Sender: FDA-Public Use
  Company Number: 2013HINLIT0069

PATIENT
  Age: 39 Year
  Sex: Male

DRUGS (4)
  1. LAMIVUDINE [Suspect]
     Indication: ANTIRETROVIRAL THERAPY
  2. STAVUDINE [Suspect]
     Indication: ANTIRETROVIRAL THERAPY
  3. EFAVIRENZ [Suspect]
     Indication: ANTIRETROVIRAL THERAPY
  4. RITONAVIR\SAQUINAVIR [Suspect]
     Indication: ANTIRETROVIRAL THERAPY

REACTIONS (1)
  - Immune reconstitution inflammatory syndrome [None]
